FAERS Safety Report 6607637-X (Version None)
Quarter: 2010Q1

REPORT INFORMATION
  Report Type: 
  Country: None (occurrence: None)
  Receive Date: 20100301
  Receipt Date: 20100220
  Transmission Date: 20100710
  Serious: Yes (Hospitalization)
  Sender: FDA-Public Use
  Company Number: US-RB-002238-10

PATIENT
  Age: 32 Year
  Sex: Male

DRUGS (1)
  1. SUBOXONE [Suspect]
     Indication: DRUG USE FOR UNKNOWN INDICATION
     Dosage: UNKNOWN DOSING DETAILS
     Route: 065

REACTIONS (5)
  - INSOMNIA [None]
  - MUSCLE SPASMS [None]
  - NASOPHARYNGITIS [None]
  - NEPHROLITHIASIS [None]
  - PAIN IN EXTREMITY [None]
